FAERS Safety Report 8925882 (Version 2)
Quarter: 2013Q2

REPORT INFORMATION
  Report Type: Report from Study
  Country: AR (occurrence: AR)
  Receive Date: 20121126
  Receipt Date: 20130617
  Transmission Date: 20140414
  Serious: No
  Sender: FDA-Public Use
  Company Number: PHHY2012AR107535

PATIENT
  Sex: Male

DRUGS (2)
  1. STARLIX [Suspect]
  2. INSULIN [Concomitant]

REACTIONS (1)
  - Memory impairment [Recovering/Resolving]
